FAERS Safety Report 8831540 (Version 2)
Quarter: 2013Q3

REPORT INFORMATION
  Report Type: Report from Study
  Country: US (occurrence: US)
  Receive Date: 20121008
  Receipt Date: 20130808
  Transmission Date: 20140515
  Serious: Yes (Other)
  Sender: FDA-Public Use
  Company Number: US-GLAXOSMITHKLINE-A0993742A

PATIENT
  Age: 63 Year
  Sex: Female
  Weight: 105.78 kg

DRUGS (1)
  1. LYMPHOSTAT-B [Suspect]
     Indication: SYSTEMIC LUPUS ERYTHEMATOSUS
     Dosage: 1MGK CYCLIC
     Route: 042
     Dates: start: 20040205

REACTIONS (1)
  - Invasive ductal breast carcinoma [Recovered/Resolved]
